FAERS Safety Report 20839401 (Version 1)
Quarter: 2022Q2

REPORT INFORMATION
  Report Type: Spontaneous
  Country: US (occurrence: US)
  Receive Date: 20220517
  Receipt Date: 20220517
  Transmission Date: 20220721
  Serious: Yes (Other)
  Sender: FDA-Public Use
  Company Number: US-AMGEN-USASP2022080544

PATIENT
  Age: 60 Year
  Sex: Female
  Weight: 56.689 kg

DRUGS (1)
  1. ENBREL [Suspect]
     Active Substance: ETANERCEPT
     Indication: Psoriatic arthropathy
     Dosage: UNK
     Route: 065

REACTIONS (11)
  - Carotid artery occlusion [Unknown]
  - Renal impairment [Unknown]
  - Autoimmune disorder [Unknown]
  - Psoriatic arthropathy [Unknown]
  - Drug ineffective [Unknown]
  - Postural orthostatic tachycardia syndrome [Unknown]
  - Atrial flutter [Unknown]
  - Low density lipoprotein increased [Unknown]
  - Hepatic steatosis [Unknown]
  - Antiphospholipid antibodies positive [Unknown]
  - Retinal vascular thrombosis [Unknown]
